FAERS Safety Report 6506133-8 (Version None)
Quarter: 2009Q4

REPORT INFORMATION
  Report Type: 
  Country: None (occurrence: None)
  Receive Date: 20091218
  Receipt Date: 20091211
  Transmission Date: 20100525
  Serious: Yes (Hospitalization)
  Sender: FDA-Public Use
  Company Number: IT-ELI_LILLY_AND_COMPANY-IT200912002964

PATIENT
  Sex: Female

DRUGS (4)
  1. PLACEBO [Suspect]
     Indication: DEMENTIA ALZHEIMER'S TYPE
     Dosage: MEDIUM/HIGH, UNK
     Dates: start: 20090915, end: 20091009
  2. OLANZAPINE [Suspect]
     Indication: DEMENTIA ALZHEIMER'S TYPE
     Dosage: MEDIUM/HIGH, UNK
     Dates: start: 20091009
  3. PLANT ALKALOIDS AND OTHER NATURAL PRODUCTS [Concomitant]
  4. HOMEOPATIC PREPARATION [Concomitant]

REACTIONS (1)
  - HYPERPYREXIA [None]
